FAERS Safety Report 15088638 (Version 1)
Quarter: 2018Q3

REPORT INFORMATION
  Report Type: Spontaneous
  Country: FR (occurrence: FR)
  Receive Date: 20180629
  Receipt Date: 20180629
  Transmission Date: 20181010
  Serious: Yes (Death, Life-Threatening, Hospitalization)
  Sender: FDA-Public Use
  Company Number: FR-ACCORD-068799

PATIENT
  Age: 39 Year
  Sex: Male
  Weight: 41 kg

DRUGS (3)
  1. OXALIPLATIN ACCORD [Suspect]
     Active Substance: OXALIPLATIN
     Indication: ADENOCARCINOMA GASTRIC
     Dosage: STRENGTH: 5 MG/ML,
     Route: 041
     Dates: start: 20180212
  2. FLUOROURACIL PFIZER [Suspect]
     Active Substance: FLUOROURACIL
     Indication: ADENOCARCINOMA GASTRIC
     Dosage: STRENGTH: 50 MG/ML
     Route: 041
     Dates: start: 20180212, end: 20180213
  3. LEVOFOLINATE ZENTIVA [Suspect]
     Active Substance: LEVOLEUCOVORIN CALCIUM
     Indication: ADENOCARCINOMA GASTRIC
     Dosage: STRENGTH: 10 MG/ML
     Route: 041
     Dates: start: 20180212

REACTIONS (5)
  - Hyperkalaemia [Fatal]
  - Ejection fraction decreased [Fatal]
  - Seizure [Unknown]
  - Hyponatraemia [Unknown]
  - Off label use [Unknown]

NARRATIVE: CASE EVENT DATE: 20180226
